FAERS Safety Report 10841426 (Version 1)
Quarter: 2015Q1

REPORT INFORMATION
  Report Type: Spontaneous
  Country: US (occurrence: US)
  Receive Date: 20150220
  Receipt Date: 20150220
  Transmission Date: 20150721
  Serious: No
  Sender: FDA-Public Use
  Company Number: US-BRISTOL-MYERS SQUIBB COMPANY-BMS-2015-010831

PATIENT
  Sex: Female
  Weight: 56.24 kg

DRUGS (1)
  1. ELIQUIS [Suspect]
     Active Substance: APIXABAN
     Indication: CEREBROVASCULAR ACCIDENT PROPHYLAXIS
     Route: 065

REACTIONS (5)
  - Temporomandibular joint syndrome [Unknown]
  - Arthritis [Unknown]
  - Nasopharyngitis [Unknown]
  - Pain in extremity [Unknown]
  - Dizziness [Unknown]
